FAERS Safety Report 14727614 (Version 6)
Quarter: 2019Q4

REPORT INFORMATION
  Report Type: Spontaneous
  Country: US (occurrence: US)
  Receive Date: 20180406
  Receipt Date: 20191106
  Transmission Date: 20200122
  Serious: Yes (Other)
  Sender: FDA-Public Use
  Company Number: US-SA-2018SA098828

PATIENT
  Age: 67 Year
  Sex: Female

DRUGS (1)
  1. DUPIXENT [Suspect]
     Active Substance: DUPILUMAB
     Indication: DERMATITIS ATOPIC
     Dosage: 300 DF,QOW
     Route: 058
     Dates: start: 20180213

REACTIONS (5)
  - Knee operation [Recovering/Resolving]
  - Rash pruritic [Unknown]
  - Dermatitis atopic [Recovering/Resolving]
  - Lower limb fracture [Unknown]
  - Stress [Recovering/Resolving]

NARRATIVE: CASE EVENT DATE: 20180321
